FAERS Safety Report 18122461 (Version 1)
Quarter: 2020Q3

REPORT INFORMATION
  Report Type: Spontaneous
  Country: PL (occurrence: PL)
  Receive Date: 20200807
  Receipt Date: 20200807
  Transmission Date: 20201103
  Serious: Yes (Hospitalization, Other)
  Sender: FDA-Public Use
  Company Number: PL-SAMSUNG BIOEPIS-SB-2020-24478

PATIENT
  Age: 35 Year
  Sex: Female
  Weight: 58 kg

DRUGS (14)
  1. ENCORTON [Suspect]
     Active Substance: PREDNISONE
     Indication: RHEUMATOID ARTHRITIS
     Route: 065
  2. ENCORTON [Suspect]
     Active Substance: PREDNISONE
     Route: 065
     Dates: start: 201907
  3. ERELZI [Suspect]
     Active Substance: ETANERCEPT-SZZS
     Route: 042
     Dates: start: 201609
  4. ERELZI [Suspect]
     Active Substance: ETANERCEPT-SZZS
     Indication: RHEUMATOID ARTHRITIS
     Route: 058
     Dates: start: 20181210, end: 20190603
  5. ENBREL [Suspect]
     Active Substance: ETANERCEPT
     Indication: RHEUMATOID ARTHRITIS
     Dosage: UNKNOWN
     Route: 065
     Dates: start: 2016, end: 20190527
  6. BENEPALI [Suspect]
     Active Substance: ETANERCEPT
     Indication: PRODUCT USED FOR UNKNOWN INDICATION
     Dosage: UNKNOWN
     Route: 065
     Dates: start: 201809, end: 201812
  7. METHOTREXATE. [Suspect]
     Active Substance: METHOTREXATE
     Indication: RHEUMATOID ARTHRITIS
     Route: 065
     Dates: start: 2010, end: 201912
  8. METEX [Concomitant]
     Dosage: UNKNOWN
     Route: 058
     Dates: start: 201901, end: 201901
  9. FOLIC [Concomitant]
     Active Substance: FOLIC ACID
     Indication: PRODUCT USED FOR UNKNOWN INDICATION
     Dosage: UNKNOWN
     Route: 065
  10. INSULIN [Concomitant]
     Active Substance: INSULIN NOS
     Indication: TYPE 1 DIABETES MELLITUS
     Dosage: UNKNOWN
     Route: 065
  11. METEX [Concomitant]
     Indication: DIABETES MELLITUS
     Dosage: UNKNOWN
     Route: 058
     Dates: end: 201901
  12. ERELZI [Suspect]
     Active Substance: ETANERCEPT-SZZS
     Route: 058
     Dates: start: 20181210, end: 20190603
  13. PLAQUENIL [Suspect]
     Active Substance: HYDROXYCHLOROQUINE SULFATE
     Indication: RHEUMATOID ARTHRITIS
     Route: 065
     Dates: start: 201907, end: 201907
  14. SULFASALAZINE. [Suspect]
     Active Substance: SULFASALAZINE
     Indication: RHEUMATOID ARTHRITIS
     Dosage: UNKNOWN
     Route: 065

REACTIONS (4)
  - Erythema nodosum [Unknown]
  - Normal newborn [Unknown]
  - Cholestasis of pregnancy [Unknown]
  - Maternal exposure during pregnancy [Unknown]

NARRATIVE: CASE EVENT DATE: 20191223
